FAERS Safety Report 4421176-6 (Version None)
Quarter: 2004Q3

REPORT INFORMATION
  Report Type: 
  Country: None (occurrence: None)
  Receive Date: 20040804
  Receipt Date: 20040719
  Transmission Date: 20050211
  Serious: Yes (Life-Threatening, Hospitalization)
  Sender: FDA-Public Use
  Company Number: WAES 0310HKG00008

PATIENT
  Age: 74 Year
  Sex: Female

DRUGS (7)
  1. TAB EZETIMIBE [Suspect]
     Indication: MIXED HYPERLIPIDAEMIA
     Dosage: 10 MG/DAILY/PO
     Route: 048
     Dates: start: 20030516, end: 20031005
  2. FENOFIBRATE [Suspect]
     Indication: MIXED HYPERLIPIDAEMIA
     Dosage: 160 MG/DAILY/PO
     Route: 048
     Dates: start: 20030516, end: 20031005
  3. DOXAZOSIN MESYLATE [Concomitant]
  4. FUROSEMIDE [Concomitant]
  5. GLIPIZIDE [Concomitant]
  6. METFORMIN HCL [Concomitant]
  7. METOPROLOL [Concomitant]

REACTIONS (17)
  - ALANINE AMINOTRANSFERASE INCREASED [None]
  - BILE DUCT STONE [None]
  - BLOOD ALKALINE PHOSPHATASE INCREASED [None]
  - BLOOD BILIRUBIN INCREASED [None]
  - CHILLS [None]
  - CHOLANGITIS ACUTE [None]
  - CHOLELITHIASIS [None]
  - DILATATION INTRAHEPATIC DUCT ACQUIRED [None]
  - ESCHERICHIA INFECTION [None]
  - GASTRIC ULCER [None]
  - HYPERTENSION [None]
  - HYPOKALAEMIA [None]
  - LEUKOCYTOSIS [None]
  - LIVER FUNCTION TEST ABNORMAL [None]
  - PYREXIA [None]
  - STREPTOCOCCAL INFECTION [None]
  - ULTRASOUND BILIARY TRACT ABNORMAL [None]
